FAERS Safety Report 6516508-9 (Version None)
Quarter: 2009Q4

REPORT INFORMATION
  Report Type: 
  Country: None (occurrence: None)
  Receive Date: 20091223
  Receipt Date: 20091217
  Transmission Date: 20100525
  Serious: Yes (Hospitalization)
  Sender: FDA-Public Use
  Company Number: SE-ELI_LILLY_AND_COMPANY-SE200912004223

PATIENT
  Sex: Female

DRUGS (8)
  1. HUMALOG MIX 50/50 [Suspect]
     Indication: TYPE 2 DIABETES MELLITUS
     Dosage: UNK, 2/D
     Dates: start: 20091209, end: 20091209
  2. LEVOTHYROXINE SODIUM [Concomitant]
  3. FOLACIN [Concomitant]
  4. BETOLVIDON [Concomitant]
  5. OXASCAND [Concomitant]
  6. AKINETON /00079501/ [Concomitant]
  7. ACETAMINOPHEN [Concomitant]
  8. CISORDINOL DEPOT [Concomitant]

REACTIONS (1)
  - URTICARIA [None]
